FAERS Safety Report 6731311-2 (Version None)
Quarter: 2010Q2

REPORT INFORMATION
  Report Type: 
  Country: None (occurrence: None)
  Receive Date: 20100518
  Receipt Date: 20100511
  Transmission Date: 20101027
  Serious: Yes (Hospitalization)
  Sender: FDA-Public Use
  Company Number: NL-MERCK-1005NLD00009

PATIENT
  Age: 71 Year
  Sex: Male
  Weight: 110 kg

DRUGS (5)
  1. JANUMET [Suspect]
     Indication: TYPE 2 DIABETES MELLITUS
     Route: 048
     Dates: start: 20100213
  2. ASPIRIN CALCIUM [Concomitant]
     Route: 048
  3. PANTOPRAZOLE [Concomitant]
     Route: 048
  4. ZOCOR [Concomitant]
     Route: 048
  5. ZESTORETIC [Concomitant]
     Route: 048

REACTIONS (1)
  - PNEUMONIA [None]
